FAERS Safety Report 12341317 (Version 2)
Quarter: 2016Q2

REPORT INFORMATION
  Report Type: Spontaneous
  Country: SA (occurrence: SA)
  Receive Date: 20160506
  Receipt Date: 20160513
  Transmission Date: 20160815
  Serious: Yes (Death, Hospitalization)
  Sender: FDA-Public Use
  Company Number: GB-AMGEN-GBRSP2016055042

PATIENT
  Age: 20 Year
  Sex: Female

DRUGS (1)
  1. BLINCYTO [Suspect]
     Active Substance: BLINATUMOMAB
     Indication: ACUTE LYMPHOCYTIC LEUKAEMIA
     Dosage: 28 MG, CYCLICAL
     Route: 042
     Dates: start: 20160103, end: 20160315

REACTIONS (1)
  - Graft versus host disease in gastrointestinal tract [Fatal]

NARRATIVE: CASE EVENT DATE: 20160310
